FAERS Safety Report 5134711-X (Version None)
Quarter: 2006Q4

REPORT INFORMATION
  Report Type: 
  Country: None (occurrence: None)
  Receive Date: 20061025
  Receipt Date: 20061023
  Transmission Date: 20070319
  Serious: Yes (Death)
  Sender: FDA-Public Use
  Company Number: JP-NOVOPROD-257929

PATIENT
  Age: 85 Year
  Sex: Female

DRUGS (5)
  1. NOVOSEVEN [Suspect]
     Indication: HAEMORRHAGE
     Dosage: 4.8 MG, 1 VIAL
     Dates: start: 20060912
  2. NOVOSEVEN [Suspect]
     Dosage: 28.8 MG, 6 VIALS
     Dates: start: 20060911, end: 20060911
  3. NOVOSEVEN [Suspect]
     Dosage: 38.4 MG, 8 VIALS
     Dates: start: 20060910, end: 20060910
  4. NOVOSEVEN [Suspect]
     Dosage: 48 MG, 10 VIALS
     Dates: start: 20060909, end: 20060909
  5. NOVOSEVEN [Suspect]
     Dosage: 28.8 MG, 6 VIALS
     Dates: start: 20060908, end: 20060908

REACTIONS (2)
  - SHOCK HAEMORRHAGIC [None]
  - THERAPEUTIC RESPONSE DECREASED [None]
